FAERS Safety Report 7244112-6 (Version None)
Quarter: 2011Q1

REPORT INFORMATION
  Report Type: 
  Country: None (occurrence: None)
  Receive Date: 20110125
  Receipt Date: 20100325
  Transmission Date: 20110831
  Serious: No
  Sender: FDA-Public Use
  Company Number: US-MYLANLABS-2010S1005120

PATIENT
  Age: 41 Year
  Sex: Female

DRUGS (2)
  1. METOPROLOL TARTRATE [Suspect]
  2. METOPROLOL TARTRATE [Suspect]

REACTIONS (1)
  - BLOOD PRESSURE INCREASED [None]
